FAERS Safety Report 24181255 (Version 3)
Quarter: 2024Q3

REPORT INFORMATION
  Report Type: Report from Study
  Country: ES (occurrence: ES)
  Receive Date: 20240807
  Receipt Date: 20240827
  Transmission Date: 20241017
  Serious: Yes (Hospitalization)
  Sender: ABBVIE
  Company Number: ES-ABBVIE-5865641

PATIENT
  Sex: Male

DRUGS (4)
  1. CARBIDOPA\LEVODOPA [Suspect]
     Active Substance: CARBIDOPA\LEVODOPA
     Indication: Parkinson^s disease
     Route: 050
     Dates: start: 20171109, end: 20240801
  2. CARBIDOPA\LEVODOPA [Suspect]
     Active Substance: CARBIDOPA\LEVODOPA
     Dosage: DOSE REDUCTION
     Route: 050
     Dates: start: 20240801, end: 20240801
  3. CARBIDOPA\LEVODOPA [Suspect]
     Active Substance: CARBIDOPA\LEVODOPA
     Dosage: DOSE REDUCTION, CONTINUOUS DOSE IS LOWERED TO 6.2 ML/H,
     Route: 050
     Dates: start: 202408, end: 202408
  4. CARBIDOPA\LEVODOPA [Suspect]
     Active Substance: CARBIDOPA\LEVODOPA
     Dosage: RAISING MORNING DOSE TO 19 ML AND CONTINUOUS DOSE TO 6.3 ML/H
     Route: 050
     Dates: start: 202408

REACTIONS (11)
  - Muscle spasms [Not Recovered/Not Resolved]
  - Mixed incontinence [Unknown]
  - Freezing phenomenon [Not Recovered/Not Resolved]
  - Overdose [Not Recovered/Not Resolved]
  - Diarrhoea [Not Recovered/Not Resolved]
  - Dyskinesia [Not Recovered/Not Resolved]
  - Muscle disorder [Not Recovered/Not Resolved]
  - Fall [Unknown]
  - General physical health deterioration [Unknown]
  - Nightmare [Unknown]
  - Gastrointestinal viral infection [Unknown]

NARRATIVE: CASE EVENT DATE: 20240101
